FAERS Safety Report 6984636-X (Version None)
Quarter: 2010Q3

REPORT INFORMATION
  Report Type: 
  Country: None (occurrence: None)
  Receive Date: 20100913
  Receipt Date: 20100830
  Transmission Date: 20110219
  Serious: Yes (Hospitalization)
  Sender: FDA-Public Use
  Company Number: FKO201000366

PATIENT
  Age: 70 Year
  Sex: Male

DRUGS (9)
  1. LEUCOVORIN CALCIUM [Suspect]
     Indication: RECTAL CANCER METASTATIC
     Dosage: 1/2 WEEK, INTRAVENOUS
     Route: 042
     Dates: start: 20100429
  2. FLUOROURACIL [Suspect]
     Indication: RECTAL CANCER METASTATIC
     Dosage: INTRAVENOUS
     Route: 042
     Dates: start: 20100429
  3. MEGACE (MEGESTROL ACETATE) (MEGESTROL ACETATE) [Concomitant]
  4. IMODIUM (LOPERAMIDE HYDROCHLORIDE) (LOPERAMIDE HYDROCHLORIDE) [Concomitant]
  5. LOMOTIL (LOMOTIL /00034001/) (LOMOTIL /00034001/) [Concomitant]
  6. FENTANYL [Concomitant]
  7. MAGNESIUM SULFATE (MAGNESIUM SULFATE) (MAGNESIUM SULFATE) [Concomitant]
  8. KYTRIL (GRANISETRON) (GRANISETRON) [Concomitant]
  9. PRILOSEC (OMEPRAZOLE) (OMEPRAZOLE) [Concomitant]

REACTIONS (6)
  - FAECES DISCOLOURED [None]
  - GASTRIC ULCER [None]
  - HAEMATEMESIS [None]
  - HAEMOGLOBIN DECREASED [None]
  - HYPERBILIRUBINAEMIA [None]
  - OESOPHAGITIS HAEMORRHAGIC [None]
